FAERS Safety Report 17767217 (Version 5)
Quarter: 2020Q3

REPORT INFORMATION
  Report Type: Spontaneous
  Country: US (occurrence: CL)
  Receive Date: 20200511
  Receipt Date: 20200922
  Transmission Date: 20201102
  Serious: Yes (Hospitalization)
  Sender: FDA-Public Use
  Company Number: CL-BIOMARINAP-CL-2020-129998

PATIENT
  Age: 23 Year
  Sex: Female
  Weight: 44 kg

DRUGS (2)
  1. ALDURAZYME [Suspect]
     Active Substance: LARONIDASE
     Indication: MUCOPOLYSACCHARIDOSIS I
     Dosage: 0.527 MILLIGRAM/KILOGRAM, QW
     Route: 041
     Dates: start: 20080101
  2. ALDURAZYME [Suspect]
     Active Substance: LARONIDASE
     Dosage: 0.527 MILLIGRAM/KILOGRAM, QW
     Route: 041

REACTIONS (9)
  - Pain [Unknown]
  - Complication associated with device [Unknown]
  - Poor venous access [Unknown]
  - Nervousness [Unknown]
  - Infusion related reaction [Recovered/Resolved]
  - Burning sensation [Unknown]
  - Device malfunction [Not Recovered/Not Resolved]
  - Catheter site pain [Unknown]
  - Device occlusion [Recovered/Resolved]

NARRATIVE: CASE EVENT DATE: 202004
